FAERS Safety Report 8763301 (Version 1)
Quarter: 2012Q4

REPORT INFORMATION
  Report Type: 
  Country: US (occurrence: US)
  Receive Date: 20120831
  Receipt Date: 20120831
  Transmission Date: 20130627
  Serious: No
  Sender: FDA-Public Use
  Company Number: US-PFIZER INC-2012209942

PATIENT
  Age: 53 Year
  Sex: Male

DRUGS (2)
  1. VANCOMYCIN HCL [Suspect]
     Indication: CLOSTRIDIAL INFECTION
     Dosage: 250 mg
     Route: 048
     Dates: start: 20120602
  2. METOPROLOL [Concomitant]
     Indication: HYPERTENSION
     Dosage: 125 mg, thrice a day

REACTIONS (1)
  - Faeces discoloured [Not Recovered/Not Resolved]
